FAERS Safety Report 19705127 (Version 1)
Quarter: 2021Q3

REPORT INFORMATION
  Report Type: Spontaneous
  Country: US (occurrence: US)
  Receive Date: 20210816
  Receipt Date: 20210816
  Transmission Date: 20211014
  Serious: Yes (Other)
  Sender: FDA-Public Use
  Company Number: US-SA-2021SA264994

PATIENT
  Sex: Male

DRUGS (5)
  1. DULCOLAX (BISACODYL) [Suspect]
     Active Substance: BISACODYL
     Dosage: UNK
  2. MACROGOL 3350 [Suspect]
     Active Substance: POLYETHYLENE GLYCOL 3350
     Dosage: UNK
  3. DULCOLAX STOOL SOFTENER [Concomitant]
     Active Substance: DOCUSATE SODIUM
  4. DOCUSATE SODIUM. [Suspect]
     Active Substance: DOCUSATE SODIUM
     Dosage: UNK
  5. DULCOLAX (BISACODYL) [Suspect]
     Active Substance: BISACODYL
     Dosage: 3 DF

REACTIONS (5)
  - Urinary tract infection [Unknown]
  - Parkinson^s disease [Unknown]
  - Abdominal pain upper [Unknown]
  - Extra dose administered [Unknown]
  - Renal disorder [Unknown]
